FAERS Safety Report 8370045-8 (Version None)
Quarter: 2012Q2

REPORT INFORMATION
  Report Type: 
  Country: None (occurrence: None)
  Receive Date: 20120518
  Receipt Date: 20120515
  Transmission Date: 20120825
  Serious: Yes (Other)
  Sender: FDA-Public Use
  Company Number: PHHY2012CA037949

PATIENT
  Sex: Female

DRUGS (13)
  1. ZOLEDRONOC ACID [Suspect]
     Dosage: 5 MG, PER YEAR
     Route: 042
     Dates: start: 20120123
  2. LORAZEPAM [Concomitant]
     Dosage: UNK UKN, UNK
  3. COLACE [Concomitant]
     Dosage: UNK UKN, UNK
  4. ZOLEDRONOC ACID [Suspect]
     Indication: OSTEOPOROSIS
     Dosage: 5 MG, PER YEAR
     Route: 042
     Dates: start: 20101223
  5. HYDROMORPHONE HCL [Concomitant]
     Dosage: UNK UKN, UNK
  6. CYMBALTA [Concomitant]
     Dosage: UNK UKN, DAILY
  7. ATORVASTATIN CALCIUM [Concomitant]
     Dosage: UNK UKN, UNK
  8. VITAMIN D [Concomitant]
     Dosage: UNK UKN, UNK
  9. SYNTHROID [Concomitant]
     Dosage: UNK UKN, UNK
  10. CALCIUM CARBONATE [Concomitant]
     Dosage: UNK UKN, UNK
  11. RABEPRAZOLE SODIUM [Concomitant]
     Dosage: UNK UKN, UNK
  12. LYRICA [Concomitant]
     Dosage: UNK UKN, UNK
  13. SENOKOT [Concomitant]
     Dosage: UNK UKN, UNK

REACTIONS (4)
  - GINGIVAL DISORDER [None]
  - GINGIVAL PAIN [None]
  - EXPOSED BONE IN JAW [None]
  - PAIN IN JAW [None]
